FAERS Safety Report 15352171 (Version 3)
Quarter: 2018Q4

REPORT INFORMATION
  Report Type: Spontaneous
  Country: JP (occurrence: JP)
  Receive Date: 20180905
  Receipt Date: 20181003
  Transmission Date: 20190204
  Serious: No
  Sender: FDA-Public Use
  Company Number: JP-BAYER-2018-164255

PATIENT
  Sex: Female

DRUGS (1)
  1. YAZ [Suspect]
     Active Substance: DROSPIRENONE\ETHINYL ESTRADIOL
     Dosage: UNK
     Route: 048
     Dates: start: 201805

REACTIONS (2)
  - Extrasystoles [None]
  - Vaginal haemorrhage [None]

NARRATIVE: CASE EVENT DATE: 20180830
